FAERS Safety Report 20551059 (Version 1)
Quarter: 2022Q1

REPORT INFORMATION
  Report Type: Report from Study
  Country: JP (occurrence: JP)
  Receive Date: 20220304
  Receipt Date: 20220304
  Transmission Date: 20220423
  Serious: Yes (Other)
  Sender: FDA-Public Use
  Company Number: JP-SA-2022SA068427

PATIENT

DRUGS (5)
  1. DOCETAXEL [Suspect]
     Active Substance: DOCETAXEL
     Indication: Metastatic gastric cancer
     Dosage: UNK
     Route: 041
  2. DOCETAXEL [Suspect]
     Active Substance: DOCETAXEL
     Dosage: 50 MG/M2
     Route: 041
  3. FLUOROURACIL [Concomitant]
     Active Substance: FLUOROURACIL
     Indication: Metastatic gastric cancer
     Dosage: 2600 MG/M2
     Route: 065
  4. LEUCOVORIN [Concomitant]
     Active Substance: LEUCOVORIN
     Indication: Metastatic gastric cancer
     Dosage: 200 MG/M2
     Route: 065
  5. OXALIPLATIN [Concomitant]
     Active Substance: OXALIPLATIN
     Indication: Metastatic gastric cancer
     Dosage: 85 MG/M2
     Route: 065

REACTIONS (2)
  - Ascites [Unknown]
  - Neutropenia [Unknown]
